FAERS Safety Report 7987477-X (Version None)
Quarter: 2011Q4

REPORT INFORMATION
  Report Type: 
  Country: None (occurrence: None)
  Receive Date: 20111216
  Receipt Date: 20111212
  Transmission Date: 20120403
  Serious: Yes (Death, Other)
  Sender: FDA-Public Use
  Company Number: PHHY2011NL18260

PATIENT
  Sex: Male

DRUGS (12)
  1. ZOMETA [Suspect]
     Dosage: 4 MG/5 ML, CONCENTRATE FOR SOLUTION FOR IV INFUSION, 1X PER 28 DAYS
     Dates: start: 20110922
  2. SIMVASTATIN [Concomitant]
  3. METFORMIN HCL [Concomitant]
  4. LISINOPRIL [Concomitant]
  5. ZOMETA [Suspect]
     Dosage: 4 MG/5 ML, CONCENTRATE FOR SOLUTION FOR IV INFUSION, 1X PER 28 DAYS
     Dates: start: 20110825
  6. ZOMETA [Suspect]
     Dosage: 4 MG/5 ML, CONCENTRATE FOR SOLUTION FOR IV INFUSION, 1X PER 28 DAYS
     Dates: start: 20110623
  7. ZOMETA [Suspect]
     Dosage: 4 MG/5 ML, CONCENTRATE FOR SOLUTION FOR IV INFUSION, 1X PER 28 DAYS
     Dates: start: 20110725
  8. ZOMETA [Suspect]
     Indication: LUNG CANCER METASTATIC
     Dosage: 4 MG/5 ML, CONCENTRATE FOR SOLUTION FOR IV INFUSION, 1X PER 28 DAYS
     Route: 042
     Dates: start: 20110130
  9. DEXAMETHASONE SODIUM PHOSPHATE [Concomitant]
     Dosage: 1.5 MG, BID
  10. ASCAL [Concomitant]
  11. ZOMETA [Suspect]
     Dosage: 4 MG/5 ML, CONCENTRATE FOR SOLUTION FOR IV INFUSION, 1X PER 28 DAYS
     Dates: start: 20110304
  12. MS CONTIN [Concomitant]

REACTIONS (12)
  - METASTASES TO CENTRAL NERVOUS SYSTEM [None]
  - DEATH [None]
  - HYPOKINESIA [None]
  - GENERAL PHYSICAL HEALTH DETERIORATION [None]
  - TERMINAL STATE [None]
  - CHILLS [None]
  - PYREXIA [None]
  - MUSCULAR WEAKNESS [None]
  - NEOPLASM PROGRESSION [None]
  - NEOPLASM MALIGNANT [None]
  - PAIN IN EXTREMITY [None]
  - DIZZINESS [None]
